FAERS Safety Report 14597437 (Version 1)
Quarter: 2018Q1

REPORT INFORMATION
  Report Type: Report from Study
  Country: DE (occurrence: DE)
  Receive Date: 20180305
  Receipt Date: 20180305
  Transmission Date: 20180509
  Serious: Yes (Death, Life-Threatening, Other)
  Sender: FDA-Public Use
  Company Number: DE-BRISTOL-MYERS SQUIBB COMPANY-BMS-2018-018853

PATIENT
  Age: 91 Year
  Sex: Female
  Weight: 56 kg

DRUGS (1)
  1. APIXABAN [Suspect]
     Active Substance: APIXABAN
     Indication: CEREBROVASCULAR ACCIDENT PROPHYLAXIS
     Dosage: 5 MG, DAILY
     Route: 048
     Dates: end: 20171108

REACTIONS (6)
  - Dysarthria [Fatal]
  - Embolic cerebral infarction [Fatal]
  - Cerebellar infarction [Fatal]
  - Hemiparesis [Fatal]
  - Cerebral infarction [Fatal]
  - Sepsis [Fatal]

NARRATIVE: CASE EVENT DATE: 20171109
